FAERS Safety Report 12537408 (Version 1)
Quarter: 2016Q3

REPORT INFORMATION
  Report Type: Spontaneous
  Country: US (occurrence: US)
  Receive Date: 20160707
  Receipt Date: 20160707
  Transmission Date: 20161109
  Serious: Yes (Hospitalization)
  Sender: FDA-Public Use
  Company Number: US-INCYTE CORPORATION-2016IN003819

PATIENT
  Sex: Male

DRUGS (2)
  1. JAKAFI [Suspect]
     Active Substance: RUXOLITINIB
     Indication: MYELOFIBROSIS
     Dosage: 25 MG, BID
     Route: 048
     Dates: start: 201410
  2. JAKAFI [Suspect]
     Active Substance: RUXOLITINIB
     Dosage: 20 MG
     Route: 048

REACTIONS (6)
  - Abdominal pain [Unknown]
  - White blood cell count increased [Unknown]
  - Cardiac arrest [Unknown]
  - Drug dose omission [Unknown]
  - Spleen disorder [Unknown]
  - Headache [Unknown]

NARRATIVE: CASE EVENT DATE: 2016
